FAERS Safety Report 5334529-9 (Version None)
Quarter: 2007Q2

REPORT INFORMATION
  Report Type: 
  Country: None (occurrence: None)
  Receive Date: 20070308
  Receipt Date: 20061108
  Transmission Date: 20071010
  Serious: No
  Sender: FDA-Public Use
  Company Number: 2006-BP-13079BP

PATIENT
  Age: 70 Year
  Sex: Male

DRUGS (6)
  1. SPIRIVA [Suspect]
     Indication: CHRONIC OBSTRUCTIVE PULMONARY DISEASE
     Dosage: 18 MCG (18 MCG, QD), IH
     Route: 055
     Dates: start: 20060301
  2. UROXATRAL [Concomitant]
  3. NEXIUM [Concomitant]
  4. LIPITOR [Concomitant]
  5. NATURAL TEARS (TEARS NATURALE /00635701/) [Concomitant]
  6. ALBUTEROL INHALER (SALBUTAMOL) [Concomitant]

REACTIONS (1)
  - DYSPNOEA [None]
